FAERS Safety Report 6838613-X (Version None)
Quarter: 2010Q3

REPORT INFORMATION
  Report Type: 
  Country: None (occurrence: None)
  Receive Date: 20100709
  Receipt Date: 20100625
  Transmission Date: 20110219
  Serious: Yes (Other)
  Sender: FDA-Public Use
  Company Number: 014524

PATIENT
  Sex: Female
  Weight: 70 kg

DRUGS (5)
  1. XYZAL [Suspect]
     Indication: ASTHMA
     Dosage: 5 MG QD
     Dates: start: 20080101, end: 20100601
  2. SPIRIVA [Concomitant]
  3. NASONEX [Concomitant]
  4. LOSEC MUPS HP [Concomitant]
  5. PREDNISOLONE [Concomitant]

REACTIONS (4)
  - CONDITION AGGRAVATED [None]
  - HEPATITIS C [None]
  - LIVER FUNCTION TEST ABNORMAL [None]
  - ULTRASOUND LIVER ABNORMAL [None]
